FAERS Safety Report 23379353 (Version 1)
Quarter: 2024Q1

REPORT INFORMATION
  Report Type: Spontaneous
  Country: GB (occurrence: GB)
  Receive Date: 20240108
  Receipt Date: 20240108
  Transmission Date: 20240409
  Serious: Yes (Hospitalization, Other)
  Sender: FDA-Public Use
  Company Number: None

PATIENT
  Age: 25 Year
  Sex: Female

DRUGS (2)
  1. OMEPRAZOLE [Suspect]
     Active Substance: OMEPRAZOLE
     Indication: Gastrooesophageal reflux disease
     Dosage: 20MG ONCE DAILY
     Route: 065
     Dates: end: 20231110
  2. DESOGESTREL [Concomitant]
     Active Substance: DESOGESTREL
     Indication: Adverse drug reaction
     Route: 065

REACTIONS (1)
  - Multiple allergies [Recovered/Resolved]

NARRATIVE: CASE EVENT DATE: 20230101
